FAERS Safety Report 8269202-0 (Version None)
Quarter: 2012Q2

REPORT INFORMATION
  Report Type: 
  Country: None (occurrence: None)
  Receive Date: 20120409
  Receipt Date: 20120402
  Transmission Date: 20120825
  Serious: Yes (Other)
  Sender: FDA-Public Use
  Company Number: PHHY2012PT028245

PATIENT
  Age: 34 Year
  Sex: Male

DRUGS (4)
  1. ICODEXTRIN [Concomitant]
  2. CEFTAZIDIME [Concomitant]
     Dosage: 1 G, UNK
  3. DIALYSIS [Concomitant]
     Dosage: UNK
     Dates: start: 20060101
  4. VANCOMYCIN [Suspect]
     Dosage: 2 G EACH FOR 5 DAYS
     Route: 033

REACTIONS (2)
  - CHEMICAL PERITONITIS [None]
  - PERITONEAL CLOUDY EFFLUENT [None]
